FAERS Safety Report 7920821-8 (Version None)
Quarter: 2011Q4

REPORT INFORMATION
  Report Type: 
  Country: None (occurrence: None)
  Receive Date: 20111117
  Receipt Date: 20110921
  Transmission Date: 20120403
  Serious: No
  Sender: FDA-Public Use
  Company Number: US-GLAXOSMITHKLINE-A0937371A

PATIENT
  Age: 56 Year
  Sex: Male

DRUGS (1)
  1. VOTRIENT [Suspect]
     Indication: PRODUCT USED FOR UNKNOWN INDICATION
     Dosage: 400MG TWICE PER DAY
     Route: 065

REACTIONS (12)
  - PAIN [None]
  - ARTHRALGIA [None]
  - ASTHENIA [None]
  - GLOSSODYNIA [None]
  - ORAL DISCOMFORT [None]
  - NAUSEA [None]
  - DECREASED APPETITE [None]
  - GAIT DISTURBANCE [None]
  - INAPPROPRIATE SCHEDULE OF DRUG ADMINISTRATION [None]
  - DIARRHOEA [None]
  - SKIN DISCOLOURATION [None]
  - ABDOMINAL PAIN UPPER [None]
